FAERS Safety Report 6728812-X (Version None)
Quarter: 2010Q2

REPORT INFORMATION
  Report Type: 
  Country: None (occurrence: None)
  Receive Date: 20100517
  Receipt Date: 20100215
  Transmission Date: 20101027
  Serious: No
  Sender: FDA-Public Use
  Company Number: US-ABBOTT-10P-163-0626303-00

PATIENT
  Sex: Female

DRUGS (13)
  1. SIMCOR [Suspect]
     Indication: CORONARY ARTERY DISEASE
     Dosage: 500/20MG DAILY
     Route: 048
     Dates: start: 20100201
  2. ACTOMET PLUS [Concomitant]
     Indication: DRUG USE FOR UNKNOWN INDICATION
  3. FISH OIL [Concomitant]
     Indication: DRUG USE FOR UNKNOWN INDICATION
  4. COREG CR [Concomitant]
     Indication: DRUG USE FOR UNKNOWN INDICATION
  5. GLUCOTROL [Concomitant]
     Indication: DRUG USE FOR UNKNOWN INDICATION
  6. HYDROCHLOROTHIAZIDE [Concomitant]
     Indication: DRUG USE FOR UNKNOWN INDICATION
  7. VERSACARE [Concomitant]
     Indication: DRUG USE FOR UNKNOWN INDICATION
  8. DIGOXIN [Concomitant]
     Indication: DRUG USE FOR UNKNOWN INDICATION
  9. TAGAMET [Concomitant]
     Indication: DRUG USE FOR UNKNOWN INDICATION
  10. LYRICA [Concomitant]
     Indication: DRUG USE FOR UNKNOWN INDICATION
  11. VIT D [Concomitant]
     Indication: DRUG USE FOR UNKNOWN INDICATION
  12. SANDOSTATIN [Concomitant]
     Indication: GASTROINTESTINAL DISORDER
     Route: 050
  13. COUMADIN [Concomitant]
     Indication: DRUG USE FOR UNKNOWN INDICATION
     Dosage: ALTERNATE 3MG AND 1.5MG

REACTIONS (2)
  - ERYTHEMA [None]
  - FLUSHING [None]
